FAERS Safety Report 22201919 (Version 5)
Quarter: 2023Q4

REPORT INFORMATION
  Report Type: Spontaneous
  Country: US (occurrence: US)
  Receive Date: 20230412
  Receipt Date: 20231117
  Transmission Date: 20240110
  Serious: No
  Sender: FDA-Public Use
  Company Number: US-BEH-2023157275

PATIENT
  Age: 24 Year
  Sex: Male

DRUGS (30)
  1. IDELVION [Suspect]
     Active Substance: COAGULATION FACTOR IX RECOMBINANT HUMAN
     Indication: Factor IX deficiency
     Dosage: 7500 INTERNATIONAL UNIT, QOW
     Route: 042
     Dates: start: 202004
  2. IDELVION [Suspect]
     Active Substance: COAGULATION FACTOR IX RECOMBINANT HUMAN
     Indication: Factor IX deficiency
     Dosage: 7500 INTERNATIONAL UNIT, QOW
     Route: 042
     Dates: start: 202004
  3. IDELVION [Suspect]
     Active Substance: COAGULATION FACTOR IX RECOMBINANT HUMAN
     Indication: Haemorrhage
     Dosage: 5000 INTERNATIONAL UNIT, PRN
     Route: 042
     Dates: start: 202004
  4. IDELVION [Suspect]
     Active Substance: COAGULATION FACTOR IX RECOMBINANT HUMAN
     Indication: Haemorrhage
     Dosage: 5000 INTERNATIONAL UNIT, PRN
     Route: 042
     Dates: start: 202004
  5. IDELVION [Suspect]
     Active Substance: COAGULATION FACTOR IX RECOMBINANT HUMAN
     Dosage: 10000 INTERNATIONAL UNIT, PRN
     Route: 042
     Dates: start: 202004
  6. IDELVION [Suspect]
     Active Substance: COAGULATION FACTOR IX RECOMBINANT HUMAN
     Dosage: 10000 INTERNATIONAL UNIT, PRN
     Route: 042
     Dates: start: 202004
  7. IDELVION [Suspect]
     Active Substance: COAGULATION FACTOR IX RECOMBINANT HUMAN
     Dosage: 7500 INTERNATIONAL UNIT, QOW
     Route: 042
     Dates: start: 202303
  8. IDELVION [Suspect]
     Active Substance: COAGULATION FACTOR IX RECOMBINANT HUMAN
     Dosage: 7500 INTERNATIONAL UNIT, QOW
     Route: 042
     Dates: start: 202303
  9. IDELVION [Suspect]
     Active Substance: COAGULATION FACTOR IX RECOMBINANT HUMAN
     Dosage: 5000 INTERNATIONAL UNIT, PRN
     Route: 042
     Dates: start: 202303
  10. IDELVION [Suspect]
     Active Substance: COAGULATION FACTOR IX RECOMBINANT HUMAN
     Dosage: 5000 INTERNATIONAL UNIT, PRN
     Route: 042
     Dates: start: 202303
  11. IDELVION [Suspect]
     Active Substance: COAGULATION FACTOR IX RECOMBINANT HUMAN
     Dosage: 10000 INTERNATIONAL UNIT, PRN
     Route: 042
     Dates: start: 202303
  12. IDELVION [Suspect]
     Active Substance: COAGULATION FACTOR IX RECOMBINANT HUMAN
     Dosage: 10000 INTERNATIONAL UNIT, PRN
     Route: 042
     Dates: start: 202303
  13. IDELVION [Suspect]
     Active Substance: COAGULATION FACTOR IX RECOMBINANT HUMAN
     Indication: Factor IX deficiency
     Dosage: 7500 INTERNATIONAL UNIT, QOW
     Route: 042
     Dates: start: 202004
  14. IDELVION [Suspect]
     Active Substance: COAGULATION FACTOR IX RECOMBINANT HUMAN
     Indication: Factor IX deficiency
     Dosage: 7500 INTERNATIONAL UNIT, QOW
     Route: 042
     Dates: start: 202004
  15. IDELVION [Suspect]
     Active Substance: COAGULATION FACTOR IX RECOMBINANT HUMAN
     Indication: Haemorrhage
     Dosage: 5000 INTERNATIONAL UNIT, PRN
     Route: 042
     Dates: start: 202004
  16. IDELVION [Suspect]
     Active Substance: COAGULATION FACTOR IX RECOMBINANT HUMAN
     Indication: Haemorrhage
     Dosage: 5000 INTERNATIONAL UNIT, PRN
     Route: 042
     Dates: start: 202004
  17. IDELVION [Suspect]
     Active Substance: COAGULATION FACTOR IX RECOMBINANT HUMAN
     Dosage: 10000 INTERNATIONAL UNIT, PRN
     Route: 042
     Dates: start: 202004
  18. IDELVION [Suspect]
     Active Substance: COAGULATION FACTOR IX RECOMBINANT HUMAN
     Dosage: 10000 INTERNATIONAL UNIT, PRN
     Route: 042
     Dates: start: 202004
  19. IDELVION [Suspect]
     Active Substance: COAGULATION FACTOR IX RECOMBINANT HUMAN
     Dosage: 7500 INTERNATIONAL UNIT, QOW
     Route: 042
     Dates: start: 202003
  20. IDELVION [Suspect]
     Active Substance: COAGULATION FACTOR IX RECOMBINANT HUMAN
     Dosage: 7500 INTERNATIONAL UNIT, QOW
     Route: 042
     Dates: start: 202003
  21. IDELVION [Suspect]
     Active Substance: COAGULATION FACTOR IX RECOMBINANT HUMAN
     Dosage: 5000 INTERNATIONAL UNIT, PRN
     Route: 042
     Dates: start: 202003
  22. IDELVION [Suspect]
     Active Substance: COAGULATION FACTOR IX RECOMBINANT HUMAN
     Dosage: 5000 INTERNATIONAL UNIT, PRN
     Route: 042
     Dates: start: 202003
  23. IDELVION [Suspect]
     Active Substance: COAGULATION FACTOR IX RECOMBINANT HUMAN
     Dosage: 10000 INTERNATIONAL UNIT, PRN
     Route: 042
     Dates: start: 202003
  24. IDELVION [Suspect]
     Active Substance: COAGULATION FACTOR IX RECOMBINANT HUMAN
     Dosage: 10000 INTERNATIONAL UNIT, PRN
     Route: 042
     Dates: start: 202003
  25. IDELVION [Suspect]
     Active Substance: COAGULATION FACTOR IX RECOMBINANT HUMAN
     Dosage: 7500 INTERNATIONAL UNIT, QOW
     Route: 042
     Dates: start: 202303
  26. IDELVION [Suspect]
     Active Substance: COAGULATION FACTOR IX RECOMBINANT HUMAN
     Dosage: 7500 INTERNATIONAL UNIT, QOW
     Route: 042
     Dates: start: 202303
  27. IDELVION [Suspect]
     Active Substance: COAGULATION FACTOR IX RECOMBINANT HUMAN
     Dosage: 5000 INTERNATIONAL UNIT, PRN
     Route: 042
     Dates: start: 202303
  28. IDELVION [Suspect]
     Active Substance: COAGULATION FACTOR IX RECOMBINANT HUMAN
     Dosage: 5000 INTERNATIONAL UNIT, PRN
     Route: 042
     Dates: start: 202303
  29. IDELVION [Suspect]
     Active Substance: COAGULATION FACTOR IX RECOMBINANT HUMAN
     Dosage: 10000 INTERNATIONAL UNIT, PRN
     Route: 042
     Dates: start: 202303
  30. IDELVION [Suspect]
     Active Substance: COAGULATION FACTOR IX RECOMBINANT HUMAN
     Dosage: 10000 INTERNATIONAL UNIT, PRN
     Route: 042
     Dates: start: 202303

REACTIONS (9)
  - Contusion [Unknown]
  - Tendon injury [Unknown]
  - Limb injury [Unknown]
  - Traumatic haemorrhage [Recovered/Resolved]
  - Joint injury [Unknown]
  - Contusion [Unknown]
  - Joint injury [Unknown]
  - Contusion [Unknown]
  - Traumatic haemorrhage [Not Recovered/Not Resolved]

NARRATIVE: CASE EVENT DATE: 20230419
